FAERS Safety Report 9248243 (Version 1)
Quarter: 2013Q2

REPORT INFORMATION
  Report Type: Spontaneous
  Country: FR (occurrence: FR)
  Receive Date: 20130423
  Receipt Date: 20130423
  Transmission Date: 20140414
  Serious: Yes (Other)
  Sender: FDA-Public Use
  Company Number: FR-UCBSA-083119

PATIENT
  Age: 82 Year
  Sex: Female
  Weight: 77 kg

DRUGS (11)
  1. KEPPRA [Suspect]
     Indication: EPILEPSY
     Dosage: UNKNOWN DOSE
     Route: 048
     Dates: start: 20130103, end: 20130104
  2. ATACAND [Concomitant]
  3. BURINEX [Concomitant]
     Dosage: 1 MG
  4. TAHOR [Concomitant]
     Dosage: 40 MG
  5. HYDROCORTISONE [Concomitant]
     Dosage: UNKNOWN DOSE
  6. MOVICOL [Concomitant]
     Dosage: UNKNOWN DOSE
  7. DIFFU-K [Concomitant]
     Dosage: UNKNOWN DOSE
  8. COUMADINE [Concomitant]
     Dosage: UNKNOWN DOSE
  9. INEXIUM [Concomitant]
     Dosage: UNKNOWN DOSE
  10. LAMICTAL [Concomitant]
     Dosage: UNKNOWN DOSE
  11. DOLIPRANE [Concomitant]
     Dosage: UNKNOWN DOSE

REACTIONS (2)
  - Confusional state [Recovered/Resolved]
  - Drug prescribing error [Recovered/Resolved]
